FAERS Safety Report 19586241 (Version 1)
Quarter: 2021Q3

REPORT INFORMATION
  Report Type: Spontaneous
  Country: FI (occurrence: FI)
  Receive Date: 20210720
  Receipt Date: 20210720
  Transmission Date: 20211014
  Serious: Yes (Other)
  Sender: FDA-Public Use
  Company Number: FI-OTSUKA-2019_010167

PATIENT
  Age: 2 Year

DRUGS (1)
  1. ARIPIPRAZOLE. [Suspect]
     Active Substance: ARIPIPRAZOLE
     Indication: PRODUCT USED FOR UNKNOWN INDICATION
     Dosage: 45 MG
     Route: 065

REACTIONS (8)
  - Fatigue [Unknown]
  - Hypothermia [Unknown]
  - Ataxia [Unknown]
  - Overdose [Unknown]
  - Tachycardia [Unknown]
  - Hypotonia [Unknown]
  - Nausea [Unknown]
  - Product use issue [Unknown]
